FAERS Safety Report 9127985 (Version 2)
Quarter: 2013Q1

REPORT INFORMATION
  Report Type: Spontaneous
  Country: US (occurrence: US)
  Receive Date: 20130122
  Receipt Date: 20130311
  Transmission Date: 20140127
  Serious: Yes (Other)
  Sender: FDA-Public Use
  Company Number: US-SHIRE-ALL1-2013-00165

PATIENT
  Age: 48 None
  Sex: Male
  Weight: 92.52 kg

DRUGS (3)
  1. ADDERALL XR [Suspect]
     Indication: ATTENTION DEFICIT/HYPERACTIVITY DISORDER
     Dosage: 20 MG, UNKNOWN
     Route: 048
     Dates: start: 20130109
  2. ADDERALL XR [Suspect]
     Dosage: 20 MG, UNKNOWN
     Route: 048
     Dates: end: 201209
  3. ADDERALL XR [Suspect]
     Dosage: 20 MG, 1X/DAY:QD
     Route: 048
     Dates: start: 2002

REACTIONS (4)
  - Depression [Not Recovered/Not Resolved]
  - Intentional drug misuse [Not Recovered/Not Resolved]
  - Anxiety [Not Recovered/Not Resolved]
  - Tic [Recovered/Resolved]
